FAERS Safety Report 9325833 (Version 1)
Quarter: 2013Q2

REPORT INFORMATION
  Report Type: Spontaneous
  Country: IT (occurrence: IT)
  Receive Date: 20130604
  Receipt Date: 20130604
  Transmission Date: 20140414
  Serious: Yes (Hospitalization)
  Sender: FDA-Public Use
  Company Number: IT-SANOFI-AVENTIS-2013SA053161

PATIENT
  Age: 80 Year
  Sex: Female

DRUGS (2)
  1. CLEXANE T [Suspect]
     Indication: THROMBOSIS PROPHYLAXIS
     Route: 058
     Dates: start: 20130405, end: 20130413
  2. ISOPTIN [Suspect]
     Indication: ATRIAL FIBRILLATION
     Route: 048
     Dates: start: 20130101, end: 20130413

REACTIONS (2)
  - Visual impairment [Unknown]
  - Melaena [Unknown]
